FAERS Safety Report 8998913 (Version 3)
Quarter: 2013Q1

REPORT INFORMATION
  Report Type: Spontaneous
  Country: US (occurrence: US)
  Receive Date: 20130103
  Receipt Date: 20130328
  Transmission Date: 20140127
  Serious: Yes (Hospitalization, Other)
  Sender: FDA-Public Use
  Company Number: US-PFIZER INC-2012334402

PATIENT
  Age: 64 Year
  Sex: Female
  Weight: 77.1 kg

DRUGS (9)
  1. LYRICA [Suspect]
     Indication: NEURALGIA
     Dosage: UNK, 2X/DAY
     Route: 048
     Dates: end: 201212
  2. NEURONTIN [Suspect]
     Indication: NEURALGIA
     Dosage: 300 MG, 2X/DAY
     Route: 048
     Dates: start: 201212
  3. OSCION [Concomitant]
     Dosage: UNK, DAILY
  4. SYMBICORT [Concomitant]
     Dosage: UNK, DAILY
  5. XANAX [Concomitant]
     Dosage: UNK, 3X/DAY
  6. PROZAC [Concomitant]
     Dosage: UNK
  7. LORTAB [Concomitant]
     Dosage: UNK
  8. CADUET [Concomitant]
     Dosage: UNK
  9. NEXIUM [Concomitant]
     Dosage: UNK

REACTIONS (5)
  - Pneumonia [Recovered/Resolved]
  - Lung disorder [Unknown]
  - Neoplasm malignant [Unknown]
  - Pain in extremity [Not Recovered/Not Resolved]
  - Pain in extremity [Not Recovered/Not Resolved]
